FAERS Safety Report 5442617-1 (Version None)
Quarter: 2007Q3

REPORT INFORMATION
  Report Type: 
  Country: None (occurrence: None)
  Receive Date: 20070904
  Receipt Date: 20070821
  Transmission Date: 20080115
  Serious: Yes (Hospitalization)
  Sender: FDA-Public Use
  Company Number: US-SHR-US-2007-031270

PATIENT
  Age: 75 Year
  Sex: Male

DRUGS (2)
  1. BETASERON [Suspect]
     Route: 058
     Dates: start: 20070804, end: 20070817
  2. ALL OTHER THERAPEUTIC PRODUCTS [Concomitant]

REACTIONS (5)
  - CONSTIPATION [None]
  - DEPRESSION [None]
  - INGUINAL HERNIA [None]
  - NAUSEA [None]
  - VOMITING [None]
